FAERS Safety Report 25461540 (Version 1)
Quarter: 2025Q2

REPORT INFORMATION
  Report Type: Spontaneous
  Country: US (occurrence: US)
  Receive Date: 20250620
  Receipt Date: 20250620
  Transmission Date: 20250716
  Serious: No
  Sender: SANOFI AVENTIS
  Company Number: US-SA-2025SA173784

PATIENT
  Age: 65 Year
  Sex: Male

DRUGS (3)
  1. DUPIXENT [Suspect]
     Active Substance: DUPILUMAB
     Indication: Eczema
     Dosage: UNK UNK, QOW
     Route: 058
     Dates: end: 202502
  2. DUPIXENT [Suspect]
     Active Substance: DUPILUMAB
     Route: 058
     Dates: start: 20250418, end: 20250418
  3. DUPIXENT [Suspect]
     Active Substance: DUPILUMAB
     Dosage: 300 MG, QOW
     Route: 058
     Dates: start: 20250502

REACTIONS (2)
  - Eczema [Recovering/Resolving]
  - Therapeutic response shortened [Recovering/Resolving]

NARRATIVE: CASE EVENT DATE: 20250101
